FAERS Safety Report 24886518 (Version 1)
Quarter: 2025Q1

REPORT INFORMATION
  Report Type: Spontaneous
  Country: US (occurrence: US)
  Receive Date: 20250126
  Receipt Date: 20250126
  Transmission Date: 20250409
  Serious: Yes (Other)
  Sender: DR REDDYS
  Company Number: US-DRL-USA-USA/2025/01/000869

PATIENT
  Age: 10 Day
  Sex: Female

DRUGS (5)
  1. CYCLOPHOSPHAMIDE [Suspect]
     Active Substance: CYCLOPHOSPHAMIDE
     Indication: Bone giant cell tumour
  2. IMATINIB [Suspect]
     Active Substance: IMATINIB
     Indication: Bone giant cell tumour
     Route: 048
  3. IMATINIB [Suspect]
     Active Substance: IMATINIB
     Dosage: INCREASED TO 10 MG/KG ONCE A DAY
     Route: 048
  4. VINCRISTINE [Suspect]
     Active Substance: VINCRISTINE
     Indication: Bone giant cell tumour
  5. DACTINOMYCIN [Suspect]
     Active Substance: DACTINOMYCIN
     Indication: Bone giant cell tumour

REACTIONS (7)
  - Malignant neoplasm progression [Recovering/Resolving]
  - Drug ineffective for unapproved indication [Recovering/Resolving]
  - Cerebrospinal fluid leakage [Recovering/Resolving]
  - Haemorrhage [Recovering/Resolving]
  - Drug effective for unapproved indication [Recovering/Resolving]
  - Metastases to bone [Recovering/Resolving]
  - Parosmia [Recovering/Resolving]
